FAERS Safety Report 6927436-9 (Version None)
Quarter: 2010Q3

REPORT INFORMATION
  Report Type: 
  Country: None (occurrence: None)
  Receive Date: 20100817
  Receipt Date: 20100809
  Transmission Date: 20110219
  Serious: No
  Sender: FDA-Public Use
  Company Number: US-JNJFOC-20100804141

PATIENT
  Sex: Female
  Weight: 94.8 kg

DRUGS (14)
  1. DURAGESIC-100 [Suspect]
     Indication: COMPLEX REGIONAL PAIN SYNDROME
     Route: 062
  2. SYNTHROID [Concomitant]
     Indication: HYPOTHYROIDISM
     Route: 048
  3. NEXIUM [Concomitant]
     Indication: GASTROOESOPHAGEAL REFLUX DISEASE
     Route: 048
  4. LAMICTAL [Concomitant]
     Indication: COMPLEX REGIONAL PAIN SYNDROME
     Dosage: 100 MG + 50 MG 1 IN AM, 100 MG + 50 MG 1 IN AFTERNOON, 100 MG + 50 MG 1 IN NIGHT
     Route: 048
  5. SKELAXIN [Concomitant]
     Indication: MUSCLE RELAXANT THERAPY
     Route: 048
  6. DILAUDID [Concomitant]
     Indication: COMPLEX REGIONAL PAIN SYNDROME
     Route: 048
  7. PROVIGIL [Concomitant]
     Indication: SOMNOLENCE
     Route: 048
  8. ARICEPT [Concomitant]
     Indication: MEMORY IMPAIRMENT
     Route: 048
  9. CLONAZEPAM [Concomitant]
     Indication: COMPLEX REGIONAL PAIN SYNDROME
     Route: 048
  10. AMITRIPTYLINE HYDROCHLORIDE [Concomitant]
     Indication: COMPLEX REGIONAL PAIN SYNDROME
     Route: 048
  11. CITALOPRAM [Concomitant]
     Indication: COMPLEX REGIONAL PAIN SYNDROME
     Route: 048
  12. TORSEMIDE [Concomitant]
     Indication: FLUID RETENTION
     Route: 048
  13. TIZANIDINE HCL [Concomitant]
     Indication: MUSCLE SPASMS
     Route: 048
  14. IMITREX [Concomitant]
     Indication: HEADACHE
     Route: 048

REACTIONS (4)
  - APPLICATION SITE ERYTHEMA [None]
  - APPLICATION SITE PRURITUS [None]
  - PRODUCT ADHESION ISSUE [None]
  - WRONG TECHNIQUE IN DRUG USAGE PROCESS [None]
